FAERS Safety Report 5352251-X (Version None)
Quarter: 2007Q2

REPORT INFORMATION
  Report Type: 
  Country: None (occurrence: None)
  Receive Date: 20070521
  Receipt Date: 20070329
  Transmission Date: 20071010
  Serious: No
  Sender: FDA-Public Use
  Company Number: WAES 0703USA05543

PATIENT
  Age: 67 Year
  Sex: Male

DRUGS (5)
  1. JANUVIA [Suspect]
     Indication: DIABETES MELLITUS
     Dosage: 100 MG/DAILY/PO
     Route: 048
     Dates: start: 20070321
  2. ACTOS [Concomitant]
  3. DIOVAN [Concomitant]
  4. GLYNASE PRESTAB [Concomitant]
  5. SABATIA ANGULARIS [Concomitant]

REACTIONS (1)
  - BLOOD GLUCOSE INCREASED [None]
